FAERS Safety Report 4556308-2 (Version None)
Quarter: 2005Q1

REPORT INFORMATION
  Report Type: 
  Country: None (occurrence: None)
  Receive Date: 20050103
  Receipt Date: 20040819
  Transmission Date: 20050727
  Serious: Yes (Other)
  Sender: FDA-Public Use
  Company Number: 2004UW17604

PATIENT
  Age: 84 Year
  Sex: Female
  Weight: 57.6068 kg

DRUGS (2)
  1. CRESTOR [Suspect]
     Indication: BLOOD CHOLESTEROL INCREASED
     Dosage: 10 MG PO
     Route: 048
     Dates: start: 20040101, end: 20040816
  2. HYDROCHLOROTHIAZIDE [Concomitant]

REACTIONS (2)
  - BACK PAIN [None]
  - BREAST PAIN [None]
